FAERS Safety Report 6167526-4 (Version None)
Quarter: 2009Q2

REPORT INFORMATION
  Report Type: 
  Country: None (occurrence: None)
  Receive Date: 20090424
  Receipt Date: 20080610
  Transmission Date: 20091009
  Serious: No
  Sender: FDA-Public Use
  Company Number: A0732230A

PATIENT

DRUGS (2)
  1. FLOVENT [Suspect]
     Route: 065
  2. SYMBICORT [Concomitant]

REACTIONS (1)
  - ANGER [None]
